FAERS Safety Report 23977959 (Version 2)
Quarter: 2024Q3

REPORT INFORMATION
  Report Type: Spontaneous
  Country: FR (occurrence: None)
  Receive Date: 20240614
  Receipt Date: 20240709
  Transmission Date: 20241017
  Serious: Yes (Hospitalization)
  Sender: ASTRAZENECA
  Company Number: 2024A135997

PATIENT
  Age: 41 Year
  Sex: Female

DRUGS (1)
  1. ANIFROLUMAB [Suspect]
     Active Substance: ANIFROLUMAB
     Indication: Cutaneous lupus erythematosus
     Route: 042

REACTIONS (2)
  - Oedema [Recovered/Resolved]
  - Off label use [Recovered/Resolved]
